FAERS Safety Report 18087547 (Version 2)
Quarter: 2020Q3

REPORT INFORMATION
  Report Type: Spontaneous
  Country: IT (occurrence: IT)
  Receive Date: 20200729
  Receipt Date: 20200819
  Transmission Date: 20201103
  Serious: Yes (Other)
  Sender: FDA-Public Use
  Company Number: IT-VELOXIS PHARMACEUTICALS-2020VELIT-000645

PATIENT
  Age: 37 Year
  Sex: Female

DRUGS (2)
  1. ENVARSUS XR [Suspect]
     Active Substance: TACROLIMUS
     Indication: RENAL TRANSPLANT
     Dosage: UNK, UNKNOWN FREQ.
     Route: 065
  2. MYCOPHENOLIC ACID. [Concomitant]
     Active Substance: MYCOPHENOLIC ACID
     Indication: RENAL TRANSPLANT
     Dosage: UNK UNK, UNKNOWN FREQ.
     Route: 065

REACTIONS (7)
  - Myalgia [Recovered/Resolved]
  - Toxicity to various agents [Recovered/Resolved]
  - Cerebrovascular disorder [Recovered/Resolved]
  - Acute kidney injury [Recovered/Resolved]
  - Peripheral sensory neuropathy [Recovered/Resolved]
  - Paraplegia [Recovered/Resolved]
  - Alveolitis [Recovered/Resolved]
